FAERS Safety Report 5352392-7 (Version None)
Quarter: 2007Q2

REPORT INFORMATION
  Report Type: 
  Country: None (occurrence: None)
  Receive Date: 20070607
  Receipt Date: 20070607
  Transmission Date: 20071010
  Serious: Yes (Other)
  Sender: FDA-Public Use
  Company Number: None

PATIENT
  Age: 50 Year
  Sex: Male
  Weight: 62.5964 kg

DRUGS (11)
  1. PALIPERIDONE 9 MG JANSSON [Suspect]
     Indication: SCHIZOPHRENIA, PARANOID TYPE
     Dosage: 9 MG DAILY-AM PO
     Route: 048
     Dates: start: 20070411, end: 20070421
  2. PALIPERIDONE 6 MG JANSSON [Suspect]
     Indication: PSYCHOTIC DISORDER
     Dosage: 6 MG DAILY-AM PO
     Route: 048
     Dates: start: 20070403, end: 20070411
  3. ACETAMINOPHEN [Concomitant]
  4. BISACODLY [Concomitant]
  5. ALUMINUM/MAGNESIUM/SIMETHICONE [Concomitant]
  6. NICOTINE PATCHES [Concomitant]
  7. COGENTIN [Concomitant]
  8. LORAZEPAM [Concomitant]
  9. MICONAZOLE [Concomitant]
  10. VALPROIC ACID [Concomitant]
  11. FERROUS SULFATE [Concomitant]

REACTIONS (1)
  - PRIAPISM [None]
